FAERS Safety Report 12490273 (Version 2)
Quarter: 2016Q2

REPORT INFORMATION
  Report Type: Spontaneous
  Country: US (occurrence: US)
  Receive Date: 20160622
  Receipt Date: 20160623
  Transmission Date: 20160815
  Serious: No
  Sender: FDA-Public Use
  Company Number: US-ASTRAZENECA-2012SE69286

PATIENT
  Age: 65 Year
  Sex: Female
  Weight: 72.6 kg

DRUGS (7)
  1. PRILOSEC [Suspect]
     Active Substance: OMEPRAZOLE MAGNESIUM
     Indication: GASTROOESOPHAGEAL REFLUX DISEASE
     Route: 048
     Dates: end: 2016
  2. NEXIUM [Suspect]
     Active Substance: ESOMEPRAZOLE MAGNESIUM
     Indication: GASTROOESOPHAGEAL REFLUX DISEASE
     Route: 048
  3. PRILOSEC [Suspect]
     Active Substance: OMEPRAZOLE MAGNESIUM
     Indication: IRRITABLE BOWEL SYNDROME
     Route: 048
     Dates: end: 2016
  4. PRILOSEC OTC [Suspect]
     Active Substance: OMEPRAZOLE MAGNESIUM
     Indication: GASTROOESOPHAGEAL REFLUX DISEASE
     Route: 048
  5. LIPITOR [Concomitant]
     Active Substance: ATORVASTATIN CALCIUM
     Indication: BLOOD CHOLESTEROL INCREASED
  6. PRILOSEC [Suspect]
     Active Substance: OMEPRAZOLE MAGNESIUM
     Indication: GASTROOESOPHAGEAL REFLUX DISEASE
     Route: 048
     Dates: end: 201201
  7. PRILOSEC [Suspect]
     Active Substance: OMEPRAZOLE MAGNESIUM
     Indication: IRRITABLE BOWEL SYNDROME
     Route: 048
     Dates: end: 201201

REACTIONS (6)
  - Drug ineffective [Unknown]
  - Blood cholesterol increased [Unknown]
  - Off label use [Unknown]
  - Intentional product misuse [Unknown]
  - Irritable bowel syndrome [Unknown]
  - Regurgitation [Unknown]

NARRATIVE: CASE EVENT DATE: 201201
